FAERS Safety Report 6881757-7 (Version None)
Quarter: 2010Q3

REPORT INFORMATION
  Report Type: 
  Country: None (occurrence: None)
  Receive Date: 20100728
  Receipt Date: 20100728
  Transmission Date: 20110219
  Serious: Yes (Death)
  Sender: FDA-Public Use
  Company Number: None

PATIENT
  Age: 45 Year
  Sex: Male
  Weight: 58.9676 kg

DRUGS (1)
  1. PRIVIGEN [Suspect]
     Indication: KIDNEY TRANSPLANT REJECTION
     Dosage: VARIES 2 WEEKS-7-INFUSION
     Dates: start: 20091111, end: 20091127

REACTIONS (2)
  - INFLUENZA LIKE ILLNESS [None]
  - RESPIRATORY FAILURE [None]
